FAERS Safety Report 24278180 (Version 1)
Quarter: 2024Q3

REPORT INFORMATION
  Report Type: Spontaneous
  Country: US (occurrence: US)
  Receive Date: 20240903
  Receipt Date: 20240903
  Transmission Date: 20241016
  Serious: Yes (Other)
  Sender: TAKEDA
  Company Number: US-TAKEDA-2024TUS087192

PATIENT
  Age: 16 Year
  Sex: Female

DRUGS (1)
  1. TRINTELLIX [Suspect]
     Active Substance: VORTIOXETINE HYDROBROMIDE
     Indication: Major depression
     Dosage: 10 MILLIGRAM
     Route: 065
     Dates: start: 20240726, end: 20240826

REACTIONS (5)
  - Abortion spontaneous [Unknown]
  - Suicidal ideation [Unknown]
  - Pregnancy [Unknown]
  - Mood swings [Unknown]
  - Intentional product misuse [Unknown]
